FAERS Safety Report 6443297-9 (Version None)
Quarter: 2009Q4

REPORT INFORMATION
  Report Type: 
  Country: None (occurrence: None)
  Receive Date: 20091112
  Receipt Date: 20091028
  Transmission Date: 20100525
  Serious: Yes (Hospitalization)
  Sender: FDA-Public Use
  Company Number: JP-001095

PATIENT
  Age: 30 Year
  Sex: Female

DRUGS (1)
  1. MENOTROPINS [Suspect]
     Indication: ARTIFICIAL INSEMINATION BY PARTNER

REACTIONS (4)
  - DRUG EXPOSURE DURING PREGNANCY [None]
  - ECTOPIC PREGNANCY [None]
  - GENITAL HAEMORRHAGE [None]
  - UTERINE HAEMORRHAGE [None]
